FAERS Safety Report 9907478 (Version 1)
Quarter: 2014Q1

REPORT INFORMATION
  Report Type: Spontaneous
  Country: ES (occurrence: ES)
  Receive Date: 20140218
  Receipt Date: 20140218
  Transmission Date: 20141002
  Serious: Yes (Hospitalization)
  Sender: FDA-Public Use
  Company Number: ES-BAXTER-2014BAX007497

PATIENT
  Sex: Female

DRUGS (3)
  1. EXTRANEAL [Suspect]
     Indication: PERITONEAL DIALYSIS
     Dosage: 1 BAG
     Route: 033
     Dates: start: 20131209
  2. PHYSIONEAL 35 GLUCOSA 1,36% P/V/13,6 MG/ML. SOL.DIAL.PER. [Suspect]
     Indication: PERITONEAL DIALYSIS
     Dosage: 1 BAG
     Route: 033
     Dates: start: 20131209
  3. PHYSIONEAL 35 GLUCOSA 2,27% P/V/22,7 MG/ML. CLEAR-FLEX SOLUCI?N PARA D [Suspect]
     Indication: PERITONEAL DIALYSIS
     Dosage: 1 BAG
     Route: 033
     Dates: start: 20131209

REACTIONS (1)
  - Encephalopathy [Unknown]
